FAERS Safety Report 16459771 (Version 1)
Quarter: 2019Q2

REPORT INFORMATION
  Report Type: Spontaneous
  Country: US (occurrence: US)
  Receive Date: 20190510
  Receipt Date: 20190510
  Transmission Date: 20190711
  Serious: Yes (Death)
  Sender: FDA-Public Use
  Company Number: None

PATIENT
  Age: 74 Year
  Sex: Male
  Weight: 69.9 kg

DRUGS (1)
  1. APIXABAN [Suspect]
     Active Substance: APIXABAN
     Indication: PULMONARY EMBOLISM
     Dates: start: 20190306, end: 20190326

REACTIONS (12)
  - Asthenia [None]
  - Anaemia [None]
  - Atrioventricular block [None]
  - Atrioventricular dissociation [None]
  - Tachycardia [None]
  - Retroperitoneal haematoma [None]
  - Myocarditis [None]
  - Confusional state [None]
  - Atrioventricular block complete [None]
  - Myasthenia gravis [None]
  - Myasthenia gravis crisis [None]
  - Hypotension [None]

NARRATIVE: CASE EVENT DATE: 20190416
